FAERS Safety Report 15991419 (Version 5)
Quarter: 2019Q2

REPORT INFORMATION
  Report Type: Spontaneous
  Country: US (occurrence: US)
  Receive Date: 20190221
  Receipt Date: 20190621
  Transmission Date: 20190711
  Serious: Yes (Other)
  Sender: FDA-Public Use
  Company Number: US-PFIZER INC-2019057917

PATIENT
  Age: 57 Year
  Sex: Female
  Weight: 72.56 kg

DRUGS (2)
  1. PREPARATION H SUPPOSITORY [Suspect]
     Active Substance: COCOA BUTTER\PHENYLEPHRINE HYDROCHLORIDE
     Indication: HAEMORRHOIDS
     Dosage: UNK
     Dates: start: 20190126, end: 20190202
  2. PREPARATION H SUPPOSITORY [Suspect]
     Active Substance: COCOA BUTTER\PHENYLEPHRINE HYDROCHLORIDE
     Dosage: UNK

REACTIONS (7)
  - Malaise [Unknown]
  - Haemorrhage [Recovered/Resolved]
  - Product colour issue [Recovered/Resolved]
  - Headache [Unknown]
  - Product physical issue [Recovered/Resolved]
  - Pain [Unknown]
  - Burning sensation [Recovering/Resolving]

NARRATIVE: CASE EVENT DATE: 20190126
